FAERS Safety Report 12616123 (Version 1)
Quarter: 2016Q3

REPORT INFORMATION
  Report Type: Spontaneous
  Country: US (occurrence: US)
  Receive Date: 20160802
  Receipt Date: 20160802
  Transmission Date: 20161109
  Serious: Yes (Other)
  Sender: FDA-Public Use
  Company Number: US-BION-20160313

PATIENT
  Age: 70 Year
  Sex: Female

DRUGS (10)
  1. ZOLOFT [Concomitant]
     Active Substance: SERTRALINE HYDROCHLORIDE
  2. UNKNOWN PRESCRIPTION MEDICATION [Concomitant]
  3. LIDOCAINE INJECTION [Concomitant]
     Active Substance: LIDOCAINE
  4. ONDANSETRON ODT [Concomitant]
     Active Substance: ONDANSETRON
  5. ZOCOR [Concomitant]
     Active Substance: SIMVASTATIN
  6. PERCOCET [Concomitant]
     Active Substance: ACETAMINOPHEN\OXYCODONE HYDROCHLORIDE
  7. DIOVAN [Concomitant]
     Active Substance: VALSARTAN
  8. BYSTOLIC [Concomitant]
     Active Substance: NEBIVOLOL HYDROCHLORIDE
  9. ALEVE [Suspect]
     Active Substance: NAPROXEN SODIUM
     Indication: ARTHRITIS
     Route: 048
     Dates: start: 1980
  10. NEXIUM [Concomitant]
     Active Substance: ESOMEPRAZOLE MAGNESIUM

REACTIONS (9)
  - Drug prescribing error [Unknown]
  - Drug effect incomplete [Recovered/Resolved]
  - Overdose [Unknown]
  - Nephrolithiasis [Recovered/Resolved]
  - Product physical issue [Unknown]
  - Product physical issue [None]
  - Weight fluctuation [Unknown]
  - Incorrect drug administration duration [Unknown]
  - Product quality issue [None]

NARRATIVE: CASE EVENT DATE: 1980
